FAERS Safety Report 10616343 (Version 1)
Quarter: 2014Q4

REPORT INFORMATION
  Report Type: Spontaneous
  Country: US (occurrence: US)
  Receive Date: 20141201
  Receipt Date: 20141201
  Transmission Date: 20150529
  Serious: Yes (Hospitalization)
  Sender: FDA-Public Use
  Company Number: US-PFIZER INC-2014324876

PATIENT
  Age: 50 Year
  Sex: Female
  Weight: 77 kg

DRUGS (32)
  1. DUONEB [Concomitant]
     Active Substance: ALBUTEROL SULFATE\IPRATROPIUM BROMIDE
     Dosage: EVERY 6 HOURS
  2. ZITHROMAX [Concomitant]
     Active Substance: AZITHROMYCIN DIHYDRATE
     Dosage: 250 MG, DAILY
     Route: 048
     Dates: end: 20140919
  3. METHYLPREDNISOLONE. [Suspect]
     Active Substance: METHYLPREDNISOLONE
     Indication: ASTHMA
     Dosage: 4 MG
     Route: 048
     Dates: start: 20140910, end: 20140918
  4. SOLU-MEDROL [Suspect]
     Active Substance: METHYLPREDNISOLONE SODIUM SUCCINATE
     Indication: RESPIRATORY DISTRESS
     Dosage: UNK
     Route: 030
     Dates: start: 20140909
  5. LACTOBACILLUS [Concomitant]
     Active Substance: LACTOBACILLUS ACIDOPHILUS
     Dosage: (10 BILLION CELL), DAILY
  6. TESSALON [Concomitant]
     Active Substance: BENZONATATE
     Indication: COUGH
     Dosage: 200MG EVERY 8 HOURS AS NEEDED
  7. ADVAIR HFA [Concomitant]
     Active Substance: FLUTICASONE PROPIONATE\SALMETEROL XINAFOATE
     Dosage: 230MCG- 21MCG AT 2 PUFFS BY INHALATION TWICE DAILY
  8. MUCINEX [Concomitant]
     Active Substance: GUAIFENESIN
     Indication: COUGH
     Dosage: 600MG 2X/DAY AS NEEDED
  9. EPIPEN [Concomitant]
     Active Substance: EPINEPHRINE
     Indication: DYSPNOEA
     Dosage: AS NEEDED
  10. METHYLPREDNISOLONE. [Suspect]
     Active Substance: METHYLPREDNISOLONE
     Dosage: UNK
     Route: 048
     Dates: start: 20140919
  11. DUONEB [Concomitant]
     Active Substance: ALBUTEROL SULFATE\IPRATROPIUM BROMIDE
     Indication: DYSPNOEA
     Dosage: 0.5MG/3ML TWICE DAILY AND AS NEEDED
  12. TUSSIONEX PENNKINETIC [Concomitant]
     Active Substance: CHLORPHENIRAMINE\HYDROCODONE
     Indication: RESPIRATORY DISTRESS
     Dosage: UNK
  13. NASONEX [Concomitant]
     Active Substance: MOMETASONE FUROATE
     Dosage: 50?G (2 SQUIRTS TO BOTH NOSTRILS) DAILY
     Route: 061
  14. VITAMIN B12 [Concomitant]
     Active Substance: CYANOCOBALAMIN
     Dosage: 2500 ?G 3 TIMES WEEKLY
  15. VITAMIN B12 [Concomitant]
     Active Substance: CYANOCOBALAMIN
     Dosage: 2500 MG, DAILY
  16. SOLU-MEDROL [Suspect]
     Active Substance: METHYLPREDNISOLONE SODIUM SUCCINATE
     Indication: ASTHMA
     Dosage: 60MG FOUR TIMES DAILY
     Route: 042
     Dates: start: 20140919
  17. DUONEB [Concomitant]
     Active Substance: ALBUTEROL SULFATE\IPRATROPIUM BROMIDE
     Dosage: 3 ML, EVERY 4 HRS AS NEEDED
  18. CALCIUM CARBONATE. [Concomitant]
     Active Substance: CALCIUM CARBONATE
     Dosage: 1200 MG, DAILY
  19. PULMICORT TURBUHALER [Concomitant]
     Active Substance: BUDESONIDE
     Dosage: 1MG/2ML AT 0.5 ML BY INHALATION TWICE DAILY
  20. CLARITIN [Concomitant]
     Active Substance: LORATADINE
     Dosage: 10 MG, DAILY
  21. EVISTA [Concomitant]
     Active Substance: RALOXIFENE HYDROCHLORIDE
     Dosage: 60 MG, DAILY
  22. ZANTAC [Concomitant]
     Active Substance: RANITIDINE HYDROCHLORIDE
     Dosage: 75 MG, DAILY
  23. CALCIUM [Concomitant]
     Active Substance: CALCIUM
     Dosage: 1200 MG, DAILY
  24. HYDROCORTISONE. [Suspect]
     Active Substance: HYDROCORTISONE
     Dosage: 5MG DAILY AT BEDTIME
  25. PRILOSEC [Concomitant]
     Active Substance: OMEPRAZOLE MAGNESIUM
     Dosage: 40 MG, DAILY
  26. VITAMIN D3 [Concomitant]
     Active Substance: CHOLECALCIFEROL
     Dosage: 3000 MG, DAILY
  27. VITAMIN C [Concomitant]
     Active Substance: ASCORBIC ACID
     Dosage: 500 MG, DAILY
  28. TUSSIONEX PENNKINETIC ER [Concomitant]
     Indication: COUGH
     Dosage: 10MG-8MG /5ML AT 5ML EVERY 12 HOURS AS NEEDED
  29. HYDROCORTISONE. [Suspect]
     Active Substance: HYDROCORTISONE
     Dosage: 7.5MG DAILY IN THE MORNING
  30. ADVAIR DISKUS [Concomitant]
     Active Substance: FLUTICASONE PROPIONATE\SALMETEROL XINAFOATE
     Dosage: 230/21 TWICE DAILY
  31. ADVAIR DISKUS [Concomitant]
     Active Substance: FLUTICASONE PROPIONATE\SALMETEROL XINAFOATE
     Dosage: 250MCG-50MG AT 2 PUFFS BY INHALATION TWICE DAILY
  32. VITAMIN D3 [Concomitant]
     Active Substance: CHOLECALCIFEROL
     Dosage: 3000 IU, DAILY

REACTIONS (10)
  - Asthma [Recovered/Resolved]
  - Leukocytosis [Unknown]
  - Hypersensitivity [Unknown]
  - Hypertension [Unknown]
  - Oral candidiasis [Unknown]
  - Oedema peripheral [Unknown]
  - Candida infection [Unknown]
  - Dysphonia [Recovered/Resolved]
  - Anaemia of chronic disease [Unknown]
  - Acute sinusitis [Unknown]

NARRATIVE: CASE EVENT DATE: 201409
